FAERS Safety Report 6673228-8 (Version None)
Quarter: 2010Q1

REPORT INFORMATION
  Report Type: 
  Country: None (occurrence: None)
  Receive Date: 20100329
  Receipt Date: 20090915
  Transmission Date: 20100710
  Serious: Yes (Other)
  Sender: FDA-Public Use
  Company Number: 2009243925

PATIENT
  Age: 40 Year
  Sex: Female

DRUGS (5)
  1. GEODON [Suspect]
     Indication: PANIC DISORDER WITH AGORAPHOBIA
     Dosage: 80 MG, 2X/DAY, ORAL
     Route: 048
     Dates: start: 20080911
  2. GEODON [Suspect]
     Indication: SCHIZOAFFECTIVE DISORDER
     Dosage: 80 MG, 2X/DAY, ORAL
     Route: 048
     Dates: start: 20080911
  3. ZOLOFT [Suspect]
     Indication: SCHIZOAFFECTIVE DISORDER
     Dosage: 200 MG, 1X/DAY, ORAL
     Route: 048
     Dates: start: 19980915
  4. RISPERDAL [Concomitant]
  5. RESTORIL [Concomitant]

REACTIONS (2)
  - URINARY RETENTION [None]
  - WEIGHT INCREASED [None]
